FAERS Safety Report 6054732-2 (Version None)
Quarter: 2009Q1

REPORT INFORMATION
  Report Type: 
  Country: None (occurrence: None)
  Receive Date: 20090128
  Receipt Date: 20090120
  Transmission Date: 20090719
  Serious: Yes (Other)
  Sender: FDA-Public Use
  Company Number: DK-BRISTOL-MYERS SQUIBB COMPANY-14481758

PATIENT
  Age: 51 Year
  Sex: Male

DRUGS (3)
  1. ABILIFY [Interacting]
     Indication: BIPOLAR DISORDER
  2. CLOMIPRAMINE HCL [Interacting]
  3. LAMICTAL [Suspect]

REACTIONS (2)
  - DRUG INTERACTION [None]
  - ELECTROCARDIOGRAM QT PROLONGED [None]
